FAERS Safety Report 7150014-6 (Version None)
Quarter: 2010Q4

REPORT INFORMATION
  Report Type: 
  Country: None (occurrence: None)
  Receive Date: 20101210
  Receipt Date: 20101127
  Transmission Date: 20110411
  Serious: Yes (Hospitalization)
  Sender: FDA-Public Use
  Company Number: US-RANBAXY-2010US-39636

PATIENT
  Age: 47 Year
  Sex: Male

DRUGS (1)
  1. VERAPAMIL [Suspect]
     Indication: PRODUCT USED FOR UNKNOWN INDICATION
     Dosage: 6 G, UNK
     Route: 048

REACTIONS (4)
  - ATRIOVENTRICULAR BLOCK COMPLETE [None]
  - DRUG TOXICITY [None]
  - HYPOTENSION [None]
  - INTENTIONAL OVERDOSE [None]
